FAERS Safety Report 6727594-5 (Version None)
Quarter: 2010Q2

REPORT INFORMATION
  Report Type: 
  Country: None (occurrence: None)
  Receive Date: 20100517
  Receipt Date: 20100416
  Transmission Date: 20101027
  Serious: No
  Sender: FDA-Public Use
  Company Number: US-BAYER-201020481NA

PATIENT
  Age: 47 Year
  Sex: Male
  Weight: 86 kg

DRUGS (3)
  1. ULTRAVIST 300 [Suspect]
     Indication: COMPUTERISED TOMOGRAM
     Dosage: TOTAL DAILY DOSE: 100 ML  UNIT DOSE: 200 ML
     Route: 042
     Dates: start: 20100416, end: 20100416
  2. ALLEGRA [Concomitant]
  3. SIMVASTATIN [Concomitant]

REACTIONS (5)
  - COUGH [None]
  - DIZZINESS [None]
  - PRURITUS [None]
  - RASH [None]
  - URTICARIA [None]
